FAERS Safety Report 6832835-X (Version None)
Quarter: 2010Q3

REPORT INFORMATION
  Report Type: 
  Country: None (occurrence: None)
  Receive Date: 20100712
  Receipt Date: 20100706
  Transmission Date: 20110219
  Serious: Yes (Other)
  Sender: FDA-Public Use
  Company Number: CA-AMGEN-US321711

PATIENT
  Sex: Male
  Weight: 87 kg

DRUGS (11)
  1. ROMIPLOSTIM [Suspect]
     Indication: IDIOPATHIC THROMBOCYTOPENIC PURPURA
     Route: 058
     Dates: start: 20070618, end: 20081125
  2. FOLIC ACID [Concomitant]
     Route: 048
     Dates: start: 20030101
  3. LOSARTAN POSTASSIUM [Concomitant]
     Route: 048
     Dates: start: 20060901
  4. HYDROCHLOROTHIAZIDE [Concomitant]
     Route: 048
     Dates: start: 20060901
  5. ALENDRONATE SODIUM [Concomitant]
     Route: 048
     Dates: start: 20050401
  6. CALCITRIOL [Concomitant]
     Route: 048
     Dates: start: 20030101
  7. ROSUVASTATIN [Concomitant]
     Route: 048
     Dates: start: 20051201
  8. LEVOTHYROXINE [Concomitant]
     Route: 048
     Dates: start: 20071121
  9. METFORMIN HCL [Concomitant]
     Route: 048
     Dates: start: 20070524
  10. AMLODIPINE [Concomitant]
     Route: 048
     Dates: start: 20050201
  11. ATENOLOL [Concomitant]
     Route: 048
     Dates: start: 20070301

REACTIONS (2)
  - BICYTOPENIA [None]
  - MYELOFIBROSIS [None]
